FAERS Safety Report 9875975 (Version 2)
Quarter: 2014Q1

REPORT INFORMATION
  Report Type: Other
  Country: US (occurrence: US)
  Receive Date: 20140206
  Receipt Date: 20140206
  Transmission Date: 20141002
  Serious: No
  Sender: FDA-Public Use
  Company Number: US-ACORDA-ACO_35346_2013

PATIENT
  Age: 52 Year
  Sex: Female

DRUGS (9)
  1. AMPYRA [Suspect]
     Indication: GAIT DISTURBANCE
     Dosage: 10 MG, BID
     Route: 048
     Dates: start: 201301
  2. BETASERON [Concomitant]
     Indication: RELAPSING-REMITTING MULTIPLE SCLEROSIS
     Dosage: UNK, QOD
     Route: 058
     Dates: start: 2007
  3. LEXAPRO [Concomitant]
     Indication: DEPRESSION
     Dosage: 20 MG, QD Q AM
     Route: 048
     Dates: start: 20120910
  4. MELATONIN [Concomitant]
     Indication: INSOMNIA
     Dosage: 3 MG, QD Q HS PRN
     Route: 048
  5. MULTIVITAMIN [Concomitant]
     Indication: ROUTINE HEALTH MAINTENANCE
     Dosage: UNK, QD
     Route: 048
  6. MILK OF MAGNESIA [Concomitant]
     Indication: CONSTIPATION
  7. STOOL SOFTENER [Concomitant]
     Indication: PRODUCT USED FOR UNKNOWN INDICATION
  8. GLUCOSAMINE CHONDROITIN [Concomitant]
     Indication: OSTEOARTHRITIS
     Dosage: UNK
     Route: 048
  9. BACLOFEN [Concomitant]
     Indication: MUSCLE SPASTICITY
     Dosage: 10 MG, PRN
     Route: 048
     Dates: start: 2009

REACTIONS (1)
  - Headache [Unknown]
